FAERS Safety Report 13672802 (Version 1)
Quarter: 2017Q2

REPORT INFORMATION
  Report Type: Report from Study
  Country: US (occurrence: US)
  Receive Date: 20170621
  Receipt Date: 20170621
  Transmission Date: 20170830
  Serious: Yes (Congenital Anomaly)
  Sender: FDA-Public Use
  Company Number: US-PFIZER INC-2694087

PATIENT
  Sex: Male
  Weight: 2.62 kg

DRUGS (2)
  1. CISPLATIN. [Suspect]
     Active Substance: CISPLATIN
     Indication: OVARIAN CANCER STAGE I
     Dosage: UNK
     Route: 064
  2. PACLITAXEL. [Suspect]
     Active Substance: PACLITAXEL
     Indication: OVARIAN CANCER STAGE I
     Dosage: UNK
     Route: 064

REACTIONS (7)
  - Autism spectrum disorder [Unknown]
  - Dyslexia [Unknown]
  - Tourette^s disorder [Unknown]
  - Jaundice [Unknown]
  - Speech disorder developmental [Unknown]
  - Maternal exposure timing unspecified [Unknown]
  - Hyperbilirubinaemia [Unknown]
